FAERS Safety Report 9954699 (Version 2)
Quarter: 2014Q1

REPORT INFORMATION
  Report Type: Spontaneous
  Country: US (occurrence: US)
  Receive Date: 20140304
  Receipt Date: 20140304
  Transmission Date: 20141002
  Serious: Yes (Hospitalization)
  Sender: FDA-Public Use
  Company Number: US-ABBVIE-13P-163-1068871-00

PATIENT
  Sex: Male
  Weight: 114.41 kg

DRUGS (1)
  1. HUMIRA [Suspect]
     Indication: PSORIASIS
     Route: 058
     Dates: start: 201212, end: 201301

REACTIONS (2)
  - Encephalitis viral [Recovered/Resolved]
  - Pain [Recovered/Resolved]
